FAERS Safety Report 5012401-1 (Version None)
Quarter: 2006Q2

REPORT INFORMATION
  Report Type: 
  Country: None (occurrence: None)
  Receive Date: 20060526
  Receipt Date: 20060427
  Transmission Date: 20061013
  Serious: Yes (Other)
  Sender: FDA-Public Use
  Company Number: GB-ABBOTT-06P-167-0331835-00

PATIENT
  Age: 36 Year
  Sex: Female

DRUGS (1)
  1. ERYTHROMYCIN [Suspect]
     Indication: PREMATURE RUPTURE OF MEMBRANES
     Route: 048

REACTIONS (3)
  - COLITIS PSEUDOMEMBRANOUS [None]
  - HYPOTENSION [None]
  - PREMATURE RUPTURE OF MEMBRANES [None]
